FAERS Safety Report 4816821-7 (Version None)
Quarter: 2005Q4

REPORT INFORMATION
  Report Type: 
  Country: None (occurrence: None)
  Receive Date: 20051101
  Receipt Date: 20051028
  Transmission Date: 20060501
  Serious: Yes (Life-Threatening)
  Sender: FDA-Public Use
  Company Number: GB-BOEHRINGER INGELHEIM PHARMACEUTICALS, INC.-2005-UK-02194UK

PATIENT
  Age: 48 Year
  Sex: Female

DRUGS (6)
  1. MOBIC [Suspect]
     Indication: OSTEOARTHRITIS
     Route: 048
     Dates: end: 20051005
  2. ALLOPURINOL [Concomitant]
     Indication: GOUT
     Route: 048
     Dates: start: 20050701, end: 20051005
  3. CANDESARTAN [Concomitant]
     Indication: HYPERTENSION
     Route: 048
  4. ATORVASTATIN CALCIUM [Concomitant]
     Indication: TRANSIENT ISCHAEMIC ATTACK
     Route: 048
  5. ATORVASTATIN CALCIUM [Concomitant]
     Indication: PROPHYLAXIS
  6. ADCAL- D3 [Concomitant]
     Indication: OSTEOPOROSIS PROPHYLAXIS
     Route: 048

REACTIONS (1)
  - APLASTIC ANAEMIA [None]
